FAERS Safety Report 7224664-2 (Version None)
Quarter: 2011Q1

REPORT INFORMATION
  Report Type: 
  Country: None (occurrence: None)
  Receive Date: 20110113
  Receipt Date: 20101223
  Transmission Date: 20110831
  Serious: Yes (Hospitalization, Other)
  Sender: FDA-Public Use
  Company Number: AU-NOVOPROD-318601

PATIENT
  Age: 46 Year
  Sex: Female

DRUGS (3)
  1. LEVEMIR [Suspect]
     Indication: TYPE 1 DIABETES MELLITUS
     Dosage: UNK(5-27UNITS DAILY)
     Route: 065
     Dates: start: 20100908, end: 20100926
  2. NOVORAPID [Suspect]
     Indication: TYPE 1 DIABETES MELLITUS
     Dosage: UNK
     Route: 065
     Dates: start: 20100701, end: 20100807
  3. LANTUS [Suspect]
     Indication: PRODUCT USED FOR UNKNOWN INDICATION
     Dosage: UNK
     Route: 065
     Dates: start: 20100627, end: 20100905

REACTIONS (5)
  - CACHEXIA [None]
  - HYPERGLYCAEMIA [None]
  - ABDOMINAL PAIN [None]
  - LACTOSE INTOLERANCE [None]
  - CONSTIPATION [None]
